FAERS Safety Report 4901136-9 (Version None)
Quarter: 2006Q1

REPORT INFORMATION
  Report Type: 
  Country: None (occurrence: None)
  Receive Date: 20060201
  Receipt Date: 20060120
  Transmission Date: 20060701
  Serious: No
  Sender: FDA-Public Use
  Company Number: HQWYE459023JAN06

PATIENT
  Sex: 0

DRUGS (2)
  1. ZOSYN [Suspect]
     Indication: SEPSIS
  2. UNSPECIFIED ANTIBIOTIC (UNSPECIFIED ANTIBIOTIC, UNSPEC) [Suspect]

REACTIONS (3)
  - NEPHRITIS INTERSTITIAL [None]
  - RENAL TUBULAR NECROSIS [None]
  - RHABDOMYOLYSIS [None]
